FAERS Safety Report 7299213-3 (Version None)
Quarter: 2011Q1

REPORT INFORMATION
  Report Type: 
  Country: None (occurrence: None)
  Receive Date: 20110217
  Receipt Date: 20110204
  Transmission Date: 20110831
  Serious: Yes (Other)
  Sender: FDA-Public Use
  Company Number: PHHY2011TH10110

PATIENT
  Age: 10 Year
  Sex: Male

DRUGS (3)
  1. MYCOPHENOLATE MOFETIL [Suspect]
  2. CYCLOPHOSPHAMIDE [Suspect]
     Dosage: DOSAGE WAS REDUCED
  3. PREDNISOLONE [Suspect]

REACTIONS (2)
  - BLADDER TRANSITIONAL CELL CARCINOMA [None]
  - HAEMATURIA [None]
